FAERS Safety Report 21442536 (Version 2)
Quarter: 2022Q4

REPORT INFORMATION
  Report Type: Report from Study
  Country: US (occurrence: US)
  Receive Date: 20221011
  Receipt Date: 20221220
  Transmission Date: 20230113
  Serious: Yes (Hospitalization)
  Sender: FDA-Public Use
  Company Number: US-ABBVIE-4149936

PATIENT
  Sex: Female

DRUGS (5)
  1. HUMIRA [Suspect]
     Active Substance: ADALIMUMAB
     Indication: Ankylosing spondylitis
     Dosage: CITRATE FREE 40MG/0.4ML?FORM STRENGTH: 40MG
     Route: 058
  2. BioNTech COVID-19 vaccine [Concomitant]
     Indication: COVID-19 immunisation
     Dosage: ONCE,1ST DOSE
     Route: 030
     Dates: start: 20210202, end: 20210202
  3. BioNTech COVID-19 vaccine [Concomitant]
     Indication: COVID-19 immunisation
     Dosage: ONCE,2ND DOSE
     Route: 030
     Dates: start: 20210303, end: 20210303
  4. BioNTech COVID-19 vaccine [Concomitant]
     Indication: COVID-19 immunisation
     Dosage: ONCE,3RD DOSE
     Route: 030
     Dates: start: 20211111, end: 20211111
  5. SULFASALAZINE [Concomitant]
     Active Substance: SULFASALAZINE
     Indication: Product used for unknown indication

REACTIONS (5)
  - Ankylosing spondylitis [Unknown]
  - Pain [Unknown]
  - Feeling abnormal [Unknown]
  - Nausea [Unknown]
  - Arthralgia [Unknown]

NARRATIVE: CASE EVENT DATE: 20220101
